FAERS Safety Report 24107657 (Version 1)
Quarter: 2024Q3

REPORT INFORMATION
  Report Type: Report from Study
  Country: US (occurrence: None)
  Receive Date: 20240718
  Receipt Date: 20240718
  Transmission Date: 20241017
  Serious: Yes (Hospitalization)
  Sender: ASTRAZENECA
  Company Number: 2020SE81463

PATIENT
  Sex: Female

DRUGS (3)
  1. TAGRISSO [Interacting]
     Active Substance: OSIMERTINIB
     Indication: Lung neoplasm malignant
     Route: 048
  2. TAGRISSO [Interacting]
     Active Substance: OSIMERTINIB
     Indication: Lung neoplasm malignant
     Route: 048
  3. METFORMIN [Interacting]
     Active Substance: METFORMIN HYDROCHLORIDE
     Route: 065

REACTIONS (2)
  - Drug interaction [Unknown]
  - Renal failure [Unknown]
